FAERS Safety Report 10071744 (Version 1)
Quarter: 2014Q2

REPORT INFORMATION
  Report Type: Spontaneous
  Country: FI (occurrence: FI)
  Receive Date: 20140411
  Receipt Date: 20140411
  Transmission Date: 20141212
  Serious: Yes (Other)
  Sender: FDA-Public Use
  Company Number: FI-ROCHE-1374780

PATIENT
  Age: 61 Year
  Sex: Female

DRUGS (10)
  1. MABTHERA [Suspect]
     Indication: NON-HODGKIN^S LYMPHOMA
     Route: 065
     Dates: end: 200203
  2. MABTHERA [Suspect]
     Route: 065
     Dates: start: 2004
  3. CYCLOPHOSPHAMIDE [Concomitant]
     Indication: NON-HODGKIN^S LYMPHOMA
     Route: 065
     Dates: end: 200203
  4. CYCLOPHOSPHAMIDE [Concomitant]
     Route: 065
     Dates: start: 2004
  5. DOXORUBICIN [Concomitant]
     Indication: NON-HODGKIN^S LYMPHOMA
     Route: 065
     Dates: start: 200203
  6. FLUDARABINE [Concomitant]
     Indication: NON-HODGKIN^S LYMPHOMA
  7. DITRIM DUPLO [Concomitant]
  8. SPIRESIS [Concomitant]
     Indication: CARDIAC FAILURE CONGESTIVE
  9. PREDNISONE [Concomitant]
     Indication: NON-HODGKIN^S LYMPHOMA
     Route: 065
     Dates: start: 200203
  10. VINCRISTINE [Concomitant]

REACTIONS (14)
  - Transient ischaemic attack [Unknown]
  - Tubulointerstitial nephritis [Unknown]
  - Kidney fibrosis [Unknown]
  - Blood creatine increased [Unknown]
  - Left ventricular dysfunction [Unknown]
  - Hypertension [Unknown]
  - Hyperparathyroidism secondary [Unknown]
  - Pulmonary embolism [Unknown]
  - Sepsis [Unknown]
  - Pneumonia [Unknown]
  - Disease progression [Unknown]
  - Nephrogenic anaemia [Unknown]
  - General physical health deterioration [Not Recovered/Not Resolved]
  - Swelling [Unknown]
